FAERS Safety Report 6933576-0 (Version None)
Quarter: 2010Q3

REPORT INFORMATION
  Report Type: 
  Country: None (occurrence: None)
  Receive Date: 20100817
  Receipt Date: 20100803
  Transmission Date: 20110219
  Serious: No
  Sender: FDA-Public Use
  Company Number: 010170

PATIENT
  Age: 95 Year
  Sex: Female

DRUGS (7)
  1. PLETAL [Suspect]
     Indication: CEREBRAL INFARCTION
     Dosage: 100 MG, BID ORAL
     Route: 048
     Dates: start: 20100616, end: 20100619
  2. AVAPRO [Suspect]
     Indication: HYPERTENSION
     Dosage: 50 MG, QD ORAL
     Route: 048
     Dates: start: 20100616, end: 20100618
  3. ASPIRIN [Concomitant]
  4. AMLODIPINE BESYLATE [Concomitant]
  5. INDAPAMIDE [Concomitant]
  6. ARICEPT [Concomitant]
  7. LANSOPRAZOLE [Concomitant]

REACTIONS (2)
  - BLOOD PRESSURE DECREASED [None]
  - OVERDOSE [None]
